FAERS Safety Report 6343918-5 (Version None)
Quarter: 2009Q3

REPORT INFORMATION
  Report Type: 
  Country: None (occurrence: None)
  Receive Date: 20090908
  Receipt Date: 20090908
  Transmission Date: 20100115
  Serious: Yes (Other)
  Sender: FDA-Public Use
  Company Number: US-PFIZER INC-2009246673

PATIENT
  Sex: Female
  Weight: 79.365 kg

DRUGS (2)
  1. CELEBREX [Suspect]
     Indication: ARTHRITIS
     Dosage: 200 MG, 2X/DAY
  2. IBUPROFEN [Concomitant]
     Dosage: UNK

REACTIONS (2)
  - DERMATITIS [None]
  - INTERVERTEBRAL DISC PROTRUSION [None]
